FAERS Safety Report 18345377 (Version 1)
Quarter: 2020Q4

REPORT INFORMATION
  Report Type: Spontaneous
  Country: DE (occurrence: DE)
  Receive Date: 20201005
  Receipt Date: 20201005
  Transmission Date: 20210114
  Serious: Yes (Other)
  Sender: FDA-Public Use
  Company Number: DE-BAYER-2020-209745

PATIENT
  Age: 41 Year
  Sex: Female

DRUGS (1)
  1. MIRENA [Suspect]
     Active Substance: LEVONORGESTREL
     Indication: CONTRACEPTION
     Dosage: DAILY DOSE 20 ?G
     Route: 015

REACTIONS (16)
  - Depression [Recovered/Resolved]
  - Chills [Recovering/Resolving]
  - Menopausal symptoms [Recovering/Resolving]
  - Sleep disorder [Recovering/Resolving]
  - Panic attack [Recovering/Resolving]
  - Fear of death [Recovering/Resolving]
  - Tachycardia [Recovering/Resolving]
  - Heart rate irregular [Recovering/Resolving]
  - Anxiety [Recovered/Resolved]
  - Supraventricular extrasystoles [Recovering/Resolving]
  - Dizziness [Recovering/Resolving]
  - Suicidal ideation [Recovering/Resolving]
  - Psychomotor hyperactivity [Recovering/Resolving]
  - Pelvic pain [Recovering/Resolving]
  - Hot flush [Recovering/Resolving]
  - Affect lability [Recovering/Resolving]
